FAERS Safety Report 8612544-7 (Version None)
Quarter: 2012Q3

REPORT INFORMATION
  Report Type: 
  Country: None (occurrence: None)
  Receive Date: 20120822
  Receipt Date: 20111007
  Transmission Date: 20120928
  Serious: No
  Sender: FDA-Public Use
  Company Number: US-ASTRAZENECA-2011SE60428

PATIENT
  Age: 65 Year
  Sex: Male
  Weight: 83.9 kg

DRUGS (1)
  1. SYMBICORT [Suspect]
     Dosage: 160/4.5 MCG, 1 PUFF TWICE DAILY
     Route: 055
     Dates: start: 20110901

REACTIONS (2)
  - CIRCUMSTANCE OR INFORMATION CAPABLE OF LEADING TO MEDICATION ERROR [None]
  - POLLAKIURIA [None]
